FAERS Safety Report 17614237 (Version 2)
Quarter: 2020Q2

REPORT INFORMATION
  Report Type: Spontaneous
  Country: US (occurrence: US)
  Receive Date: 20200402
  Receipt Date: 20200630
  Transmission Date: 20200713
  Serious: No
  Sender: FDA-Public Use
  Company Number: US-JNJFOC-20200311139

PATIENT
  Age: 47 Year
  Sex: Female
  Weight: 67.65 kg

DRUGS (4)
  1. WOMENS ROGAINE UNSCENTED [Suspect]
     Active Substance: MINOXIDIL
     Indication: ALOPECIA
     Dosage: 1/4 CAPFUL OF FOAM APPLIED TO PART LINES
     Route: 061
     Dates: start: 20200215, end: 20200225
  2. MONASCUS PURPUREUS [Concomitant]
     Active Substance: RED YEAST
     Indication: BLOOD CHOLESTEROL
     Route: 065
     Dates: start: 201906
  3. FISH OIL OMEGA 3 [Concomitant]
     Active Substance: FISH OIL
     Indication: BLOOD CHOLESTEROL
     Route: 065
     Dates: start: 201906
  4. LISINOPRIL. [Concomitant]
     Active Substance: LISINOPRIL
     Indication: BLOOD PRESSURE MEASUREMENT
     Route: 065
     Dates: start: 201906

REACTIONS (3)
  - Palpitations [Recovered/Resolved]
  - Underdose [Unknown]
  - Heart rate increased [Recovered/Resolved]

NARRATIVE: CASE EVENT DATE: 20200215
